FAERS Safety Report 7047798-4 (Version None)
Quarter: 2010Q4

REPORT INFORMATION
  Report Type: 
  Country: None (occurrence: None)
  Receive Date: 20101015
  Receipt Date: 20101005
  Transmission Date: 20110411
  Serious: Yes (Hospitalization, Disabling, Other)
  Sender: FDA-Public Use
  Company Number: US-PFIZER INC-2010126446

PATIENT
  Sex: Female
  Weight: 48.98 kg

DRUGS (3)
  1. XANAX [Suspect]
     Indication: SLEEP DISORDER
     Dosage: 0.5 MG, 3X/DAY
     Route: 048
     Dates: start: 19850101
  2. VALSARTAN [Concomitant]
     Indication: HYPERTENSION
     Dosage: 15 MG, 1X/DAY
     Route: 048
  3. VITAMIN B-12 [Concomitant]
     Dosage: 500 MG, UNK

REACTIONS (5)
  - ANXIETY [None]
  - DRUG DEPENDENCE [None]
  - DRUG INEFFECTIVE [None]
  - FOOT FRACTURE [None]
  - GALLBLADDER OPERATION [None]
